FAERS Safety Report 7942264-3 (Version None)
Quarter: 2011Q4

REPORT INFORMATION
  Report Type: 
  Country: None (occurrence: None)
  Receive Date: 20111128
  Receipt Date: 20111110
  Transmission Date: 20120403
  Serious: No
  Sender: FDA-Public Use
  Company Number: US-ABBOTT-11P-163-0854419-00

PATIENT
  Sex: Male
  Weight: 118.04 kg

DRUGS (10)
  1. ANDROGEL [Suspect]
     Indication: BLOOD TESTOSTERONE DECREASED
     Dosage: 2 PUMPS PER DAY
     Dates: start: 20110901, end: 20111001
  2. ANDROGEL [Suspect]
     Dosage: 2 PUMPS PER DAY
     Dates: start: 20111001, end: 20111101
  3. HYDRALAZINE HCL [Concomitant]
     Indication: HYPERTENSION
  4. HYDRALAZINE HCL [Concomitant]
     Dates: start: 20110901
  5. PLAVIX [Concomitant]
     Indication: ANTICOAGULANT THERAPY
  6. AMLODIPINE [Concomitant]
     Indication: HYPERTENSION
  7. ASPIRIN [Concomitant]
     Indication: CARDIOVASCULAR DISORDER
  8. SIMVASTATIN [Concomitant]
     Indication: BLOOD CHOLESTEROL INCREASED
  9. CARVEDILOL [Concomitant]
     Dates: start: 20110901
  10. CARVEDILOL [Concomitant]
     Indication: HYPERTENSION

REACTIONS (1)
  - BLOOD PRESSURE INCREASED [None]
